FAERS Safety Report 7482493-9 (Version None)
Quarter: 2011Q2

REPORT INFORMATION
  Report Type: 
  Country: None (occurrence: None)
  Receive Date: 20110516
  Receipt Date: 20110512
  Transmission Date: 20111010
  Serious: Yes (Death, Hospitalization)
  Sender: FDA-Public Use
  Company Number: LB-ABBOTT-11P-093-0724940-00

PATIENT
  Age: 72 Year
  Sex: Male

DRUGS (4)
  1. TIENAM [Concomitant]
     Indication: PRODUCT USED FOR UNKNOWN INDICATION
  2. CORTICOSTEROIDS [Concomitant]
     Indication: PRODUCT USED FOR UNKNOWN INDICATION
  3. HUMIRA [Suspect]
     Indication: PSORIATIC ARTHROPATHY
     Route: 058
     Dates: start: 20110319
  4. OTHER CARDIAC MEDICATIONS [Concomitant]
     Indication: PRODUCT USED FOR UNKNOWN INDICATION

REACTIONS (4)
  - CARDIAC ARREST [None]
  - CATHETERISATION CARDIAC [None]
  - PYREXIA [None]
  - VASCULAR CALCIFICATION [None]
